FAERS Safety Report 20900899 (Version 1)
Quarter: 2022Q2

REPORT INFORMATION
  Report Type: Spontaneous
  Country: US (occurrence: None)
  Receive Date: 20220601
  Receipt Date: 20220601
  Transmission Date: 20220721
  Serious: No
  Sender: FDA-Public Use
  Company Number: None

PATIENT
  Sex: Male
  Weight: 32.9 kg

DRUGS (7)
  1. CYCLOPHOSPHAMIDE [Suspect]
     Active Substance: CYCLOPHOSPHAMIDE
     Dates: end: 20220430
  2. CYTARABINE [Suspect]
     Active Substance: CYTARABINE
     Dates: end: 20220505
  3. DOXORUBICIN HYDROCHLORIDE [Suspect]
     Active Substance: DOXORUBICIN HYDROCHLORIDE
     Dates: end: 20220420
  4. METHOTREXATE [Suspect]
     Active Substance: METHOTREXATE
     Dates: end: 20200505
  5. ONCASPAR [Suspect]
     Active Substance: PEGASPARGASE
     Dates: end: 20220330
  6. GLEEVEC [Suspect]
     Active Substance: IMATINIB MESYLATE
     Dates: end: 20220528
  7. VINCRISTINE SULFATE [Suspect]
     Active Substance: VINCRISTINE SULFATE
     Dates: end: 20220420

REACTIONS (11)
  - Febrile neutropenia [None]
  - Pancytopenia [None]
  - Pneumonia fungal [None]
  - Lung abscess [None]
  - Tachypnoea [None]
  - Dyspnoea [None]
  - General physical health deterioration [None]
  - Respiratory distress [None]
  - Generalised oedema [None]
  - Pulmonary oedema [None]
  - Hypervolaemia [None]

NARRATIVE: CASE EVENT DATE: 20220528
